FAERS Safety Report 5086547-6 (Version None)
Quarter: 2006Q3

REPORT INFORMATION
  Report Type: 
  Country: None (occurrence: None)
  Receive Date: 20060703
  Receipt Date: 20050930
  Transmission Date: 20061208
  Serious: Yes (Hospitalization)
  Sender: FDA-Public Use
  Company Number: 2005S1009815

PATIENT
  Age: 42 Year
  Sex: Female
  Weight: 148.7798 kg

DRUGS (16)
  1. CLOZAPINE [Suspect]
     Indication: SCHIZOPHRENIA, PARANOID TYPE
     Dosage: 400 MG; HS; PO
     Route: 048
     Dates: start: 20050916, end: 20050928
  2. FAMOTIDINE [Concomitant]
  3. ZOLPIDEM TARTRATE [Concomitant]
  4. ATROPINE SULFATE/DIPHENOXYLATE HYDROCHORIDE [Concomitant]
  5. ESCITALOPRAM [Concomitant]
  6. BESILATE MESILATE [Concomitant]
  7. HYDROCHLOROTHIAZIDE [Concomitant]
  8. PROMETHAZINE [Concomitant]
  9. TRAZODONE HCL [Concomitant]
  10. LEVOTHYROXINE SODIUM [Concomitant]
  11. DULOXETINE [Concomitant]
  12. FLUPHENAZINE DECANOATE [Concomitant]
  13. POTASSIUM CHLORIDE [Concomitant]
  14. TOLTERODINE TARTRATE [Concomitant]
  15. METFORMIN HCL [Concomitant]
  16. MONTELUKAST [Concomitant]

REACTIONS (4)
  - AGRANULOCYTOSIS [None]
  - DIARRHOEA [None]
  - GRANULOCYTOPENIA [None]
  - LEUKOPENIA [None]
